FAERS Safety Report 24721944 (Version 1)
Quarter: 2024Q4

REPORT INFORMATION
  Report Type: Spontaneous
  Country: US (occurrence: US)
  Receive Date: 20241211
  Receipt Date: 20241211
  Transmission Date: 20250114
  Serious: Yes (Other)
  Sender: BAYER HEALTHCARE LLC
  Company Number: US-BAYER-2024A174661

PATIENT
  Age: 75 Year
  Sex: Male

DRUGS (1)
  1. ACETAMINOPHEN\CHLORPHENIRAMINE\DEXTROMETHORPHAN\PHENYLEPHRINE [Suspect]
     Active Substance: ACETAMINOPHEN\CHLORPHENIRAMINE\DEXTROMETHORPHAN\PHENYLEPHRINE
     Dosage: UNK
     Route: 048

REACTIONS (1)
  - Foreign body in throat [Unknown]
